FAERS Safety Report 6525082-2 (Version None)
Quarter: 2009Q4

REPORT INFORMATION
  Report Type: 
  Country: None (occurrence: None)
  Receive Date: 20091228
  Receipt Date: 20091218
  Transmission Date: 20100525
  Serious: Yes (Hospitalization)
  Sender: FDA-Public Use
  Company Number: 2009SP040096

PATIENT
  Age: 66 Year
  Sex: Female

DRUGS (7)
  1. PEGINTERFERON ALFA-2B (S-P) (PEGINTERFERON ALFA-2B) [Suspect]
     Indication: HEPATITIS C
     Dosage: 60 MCG, QW,
     Route: 058
     Dates: start: 20080825, end: 20081116
  2. PEGINTERFERON ALFA-2B (S-P) (PEGINTERFERON ALFA-2B) [Suspect]
     Indication: HEPATITIS C
     Dosage: 60 MCG, QW,
     Route: 058
     Dates: start: 20081117, end: 20090720
  3. RIBAVIRIN [Suspect]
     Indication: HEPATITIS C
     Dosage: 1000 QD, PO
     Route: 048
     Dates: start: 20080825, end: 20090111
  4. RIBAVIRIN [Suspect]
     Indication: HEPATITIS C
     Dosage: 1000 QD, PO
     Route: 048
     Dates: start: 20090112, end: 20090720
  5. BLINDED ELTROMBOPAG (ELTROMBOPAG) [Suspect]
     Indication: THROMBOCYTOPENIA
     Dosage: 100 MG, QD, PO
     Route: 048
     Dates: start: 20080825, end: 20081020
  6. BLINDED ELTROMBOPAG (ELTROMBOPAG) [Suspect]
     Indication: THROMBOCYTOPENIA
     Dosage: 100 MG, QD, PO
     Route: 048
     Dates: start: 20081021, end: 20090720
  7. ELTROMBOPAG (ELTROMBOPAG) [Suspect]
     Indication: THROMBOCYTOPENIA
     Dosage: 25 MG, QD, PO
     Route: 048
     Dates: start: 20080806, end: 20080825

REACTIONS (4)
  - ACTINOMYCOTIC PULMONARY INFECTION [None]
  - COLLAPSE OF LUNG [None]
  - PNEUMONIA [None]
  - PULMONARY AMYLOIDOSIS [None]
